FAERS Safety Report 7201343-9 (Version None)
Quarter: 2010Q4

REPORT INFORMATION
  Report Type: 
  Country: None (occurrence: None)
  Receive Date: 20101227
  Receipt Date: 20101227
  Transmission Date: 20110411
  Serious: Yes (Other)
  Sender: FDA-Public Use
  Company Number: None

PATIENT
  Age: 28 Year
  Sex: Male
  Weight: 69.4003 kg

DRUGS (1)
  1. XYREM [Suspect]
     Indication: CIRCADIAN RHYTHM SLEEP DISORDER
     Dosage: 9G AT BEDTIME PO ; 4.5G 3 HRS FOLLOWING PO
     Route: 048
     Dates: start: 20101101, end: 20101123

REACTIONS (2)
  - DEPRESSION [None]
  - IMPAIRED WORK ABILITY [None]
